FAERS Safety Report 9132169 (Version 1)
Quarter: 2013Q1

REPORT INFORMATION
  Report Type: Report from Study
  Country: US (occurrence: US)
  Receive Date: 20130301
  Receipt Date: 20130301
  Transmission Date: 20140127
  Serious: No
  Sender: FDA-Public Use
  Company Number: US-MYLANLABS-2012S1015503

PATIENT
  Age: 18 Year
  Sex: Male
  Weight: 78.02 kg

DRUGS (4)
  1. AMNESTEEM CAPSULES [Suspect]
     Indication: ACNE FULMINANS
     Route: 048
     Dates: start: 20120316, end: 20120626
  2. CLARAVIS [Suspect]
     Indication: ACNE FULMINANS
     Route: 048
     Dates: start: 20120316, end: 20120626
  3. AMNESTEEM CAPSULES [Suspect]
     Indication: ACNE FULMINANS
     Route: 048
     Dates: start: 20120316, end: 20120626
  4. CELEXA [Concomitant]

REACTIONS (2)
  - Haematochezia [Recovered/Resolved]
  - Diarrhoea [Recovered/Resolved]
